FAERS Safety Report 22949398 (Version 6)
Quarter: 2024Q1

REPORT INFORMATION
  Report Type: Spontaneous
  Country: US (occurrence: US)
  Receive Date: 20230915
  Receipt Date: 20240103
  Transmission Date: 20240409
  Serious: No
  Sender: FDA-Public Use
  Company Number: US-Calliditas-2023CAL01169

PATIENT
  Age: 20 Year
  Sex: Female
  Weight: 60 kg

DRUGS (4)
  1. TARPEYO [Suspect]
     Active Substance: BUDESONIDE
     Indication: IgA nephropathy
     Dosage: 16 MG (4 MG CAPSULES) ONCE DAILY
     Route: 048
     Dates: start: 20230816
  2. LOSARTAN [Concomitant]
     Active Substance: LOSARTAN
  3. HYDROXYCHLOROQUINE [Concomitant]
     Active Substance: HYDROXYCHLOROQUINE
  4. QUETIAPINE [Concomitant]
     Active Substance: QUETIAPINE

REACTIONS (8)
  - Peripheral swelling [Recovering/Resolving]
  - Peripheral swelling [Not Recovered/Not Resolved]
  - Oedema peripheral [Not Recovered/Not Resolved]
  - Fatigue [Not Recovered/Not Resolved]
  - Product dose omission issue [Recovered/Resolved]
  - Back pain [Unknown]
  - Fall [Unknown]
  - Pruritus [Unknown]

NARRATIVE: CASE EVENT DATE: 20230826
